FAERS Safety Report 11184499 (Version 1)
Quarter: 2015Q2

REPORT INFORMATION
  Report Type: Spontaneous
  Country: ES (occurrence: ES)
  Receive Date: 20150612
  Receipt Date: 20150612
  Transmission Date: 20150821
  Serious: Yes (Other)
  Sender: FDA-Public Use
  Company Number: ES-PERRIGO-15ES005565

PATIENT
  Age: 84 Year
  Sex: Male

DRUGS (4)
  1. IMIQUIMOD 5% 2H1 [Suspect]
     Active Substance: IMIQUIMOD
     Indication: ACTINIC KERATOSIS
  2. IMIQUIMOD 5% 2H1 [Suspect]
     Active Substance: IMIQUIMOD
     Indication: BASAL CELL CARCINOMA
     Dosage: UNK
     Route: 061
  3. METHYL AMINOLEVULINATE [Suspect]
     Active Substance: METHYL AMINOLEVULINATE
     Indication: BASAL CELL CARCINOMA
     Dosage: UNK
     Route: 050
  4. METHYL AMINOLEVULINATE [Suspect]
     Active Substance: METHYL AMINOLEVULINATE
     Indication: ACTINIC KERATOSIS

REACTIONS (1)
  - Nodal marginal zone B-cell lymphoma [Recovering/Resolving]
